FAERS Safety Report 4366777-9 (Version None)
Quarter: 2004Q2

REPORT INFORMATION
  Report Type: 
  Country: None (occurrence: None)
  Receive Date: 20040524
  Receipt Date: 20040511
  Transmission Date: 20050107
  Serious: Yes (Hospitalization, Disabling, Other)
  Sender: FDA-Public Use
  Company Number: 2004028169

PATIENT
  Age: 67 Year
  Sex: Female
  Weight: 56 kg

DRUGS (7)
  1. NORVASC [Suspect]
     Indication: HYPERTENSION
     Dosage: 5 MG (5 MG, 1 IN 1 D), ORAL
     Route: 048
     Dates: start: 20030924, end: 20031201
  2. CILNIDIPINE (CILNIDIPINE) [Suspect]
     Indication: HYPERTENSION
     Dosage: 20 MG (20 MG, 1 IN 1 D)
     Dates: start: 20031201
  3. FAMOTIDINE [Suspect]
     Indication: GASTRIC ULCER
     Dosage: 20 MG (20 MG, 1 IN 1 D), ORAL
     Route: 048
     Dates: start: 20030401, end: 20040224
  4. ETIZOLAM (ETIZOLAM) [Suspect]
     Indication: INSOMNIA
     Dosage: (1 IN 1 D), ORAL
     Route: 048
     Dates: start: 20030801
  5. PRDNISOLONE (PREDNISOLONE) [Concomitant]
  6. MECOBALAMIN (MECOBALAMIN) [Concomitant]
  7. ETIZOLAM (ETIZOLAM) [Concomitant]

REACTIONS (16)
  - ANTINUCLEAR ANTIBODY POSITIVE [None]
  - ASCITES [None]
  - BLOOD LACTATE DEHYDROGENASE INCREASED [None]
  - BLOOD PRESSURE SYSTOLIC INCREASED [None]
  - DRUG TOXICITY [None]
  - EPISTAXIS [None]
  - ERYTHEMA [None]
  - HAEMOLYTIC ANAEMIA [None]
  - IMMUNE SYSTEM DISORDER [None]
  - INSOMNIA [None]
  - LYMPHADENOPATHY [None]
  - PLATELET COUNT DECREASED [None]
  - PLEURAL EFFUSION [None]
  - PROTEINURIA [None]
  - PURPURA [None]
  - SYSTEMIC LUPUS ERYTHEMATOSUS [None]
